FAERS Safety Report 24672552 (Version 2)
Quarter: 2024Q4

REPORT INFORMATION
  Report Type: Spontaneous
  Country: US (occurrence: US)
  Receive Date: 20241127
  Receipt Date: 20241201
  Transmission Date: 20250114
  Serious: No
  Sender: SANOFI AVENTIS
  Company Number: US-SA-2024SA345589

PATIENT
  Age: 7 Year
  Sex: Female
  Weight: 21.82 kg

DRUGS (2)
  1. DUPIXENT [Suspect]
     Active Substance: DUPILUMAB
     Indication: Dermatitis atopic
     Dosage: 300 MG, Q4W
     Route: 058
  2. MUPIROCIN [Concomitant]
     Active Substance: MUPIROCIN
     Dosage: UNK

REACTIONS (2)
  - Pharyngitis streptococcal [Unknown]
  - Ear infection [Not Recovered/Not Resolved]
